FAERS Safety Report 19271684 (Version 1)
Quarter: 2021Q2

REPORT INFORMATION
  Report Type: Spontaneous
  Country: PK (occurrence: PK)
  Receive Date: 20210518
  Receipt Date: 20210518
  Transmission Date: 20210717
  Serious: Yes (Death)
  Sender: FDA-Public Use
  Company Number: PK-PFIZER INC-2020078504

PATIENT
  Age: 70 Year
  Sex: Male

DRUGS (8)
  1. SUTENT [Suspect]
     Active Substance: SUNITINIB MALATE
     Dosage: 37.5 MG, CYCLIC (ONCE A DAILY, 2 WEEKS ON 1 WEEK OFF)
     Route: 048
     Dates: start: 20200626
  2. SUTENT [Suspect]
     Active Substance: SUNITINIB MALATE
     Dosage: 25 MG, CYCLIC (ONCE DAILY FOR TWO WEEKS THEN ONE WEEK OFF)
     Route: 048
  3. SUTENT [Suspect]
     Active Substance: SUNITINIB MALATE
     Dosage: 3 DF, CYCLIC (3 DF DAILY (FOR 14 DAYS) THEN REST FOR 1 WEEK FOR NEXT DOSE)
     Route: 048
     Dates: start: 20200313
  4. SUTENT [Suspect]
     Active Substance: SUNITINIB MALATE
     Indication: RENAL CELL CARCINOMA
     Dosage: 2 DF, CYCLIC (ONCE A DAY, CYCLIC, 2 WEEKS ON AND 1 WEEK OFF)
     Route: 048
     Dates: start: 20200218
  5. SUTENT [Suspect]
     Active Substance: SUNITINIB MALATE
     Dosage: 37.5 MG, CYCLIC (ONCE A DAILY, 2 WEEKS ON 1 WEEK OFF)
     Route: 048
     Dates: start: 20200514
  6. SUTENT [Suspect]
     Active Substance: SUNITINIB MALATE
     Dosage: 25 MG, CYCLIC (ONCE DAILY, 2 WEEKS ON AND 1 WEEK OFF)
     Route: 048
     Dates: start: 20201224
  7. NORVASC [Concomitant]
     Active Substance: AMLODIPINE BESYLATE
     Dosage: 5 MG, 1X/DAY
     Dates: start: 201910
  8. SUTENT [Suspect]
     Active Substance: SUNITINIB MALATE
     Dosage: 25 MG, CYCLIC
     Dates: start: 20201113

REACTIONS (4)
  - Stomatitis [Recovering/Resolving]
  - Diarrhoea [Unknown]
  - Blood glucose decreased [Unknown]
  - Death [Fatal]

NARRATIVE: CASE EVENT DATE: 20200314
